FAERS Safety Report 9001709 (Version 1)
Quarter: 2013Q1

REPORT INFORMATION
  Report Type: Spontaneous
  Country: US (occurrence: US)
  Receive Date: 20130107
  Receipt Date: 20130107
  Transmission Date: 20140127
  Serious: No
  Sender: FDA-Public Use
  Company Number: US-ASTELLAS-2012US010417

PATIENT
  Sex: Female

DRUGS (7)
  1. VESICARE [Suspect]
     Indication: HYPERTONIC BLADDER
     Dosage: 10 MG, UID/QD
     Route: 048
     Dates: start: 2012, end: 20121013
  2. MYRBETRIQ [Suspect]
     Indication: PRODUCT USED FOR UNKNOWN INDICATION
     Dosage: UNK
     Route: 065
     Dates: start: 201210
  3. LISINOPRIL [Concomitant]
     Indication: BLOOD PRESSURE
     Dosage: 40/2.5 UNK, UID/QD
     Route: 048
     Dates: start: 2002
  4. PERCOCET                           /00867901/ [Concomitant]
     Indication: BACK PAIN
     Dosage: 5/325 UNK, Q8 HOURS PRN
     Route: 048
     Dates: start: 2006
  5. ESTRACE [Concomitant]
     Indication: PRODUCT USED FOR UNKNOWN INDICATION
     Dosage: 3XWEEKLY
     Route: 065
     Dates: start: 2012
  6. METOPROLOL [Concomitant]
     Indication: PRODUCT USED FOR UNKNOWN INDICATION
     Dosage: 100 MG, QHS
     Route: 048
     Dates: start: 2009
  7. GLIPIZIDE [Concomitant]
     Indication: DIABETES MELLITUS
     Dosage: 1 MG, UID/QD
     Route: 048
     Dates: start: 201208

REACTIONS (4)
  - Drug ineffective [Unknown]
  - Herpes zoster [Recovering/Resolving]
  - Vision blurred [Recovering/Resolving]
  - Constipation [Recovering/Resolving]
